FAERS Safety Report 6128610-4 (Version None)
Quarter: 2009Q1

REPORT INFORMATION
  Report Type: 
  Country: None (occurrence: None)
  Receive Date: 20090323
  Receipt Date: 20090316
  Transmission Date: 20090719
  Serious: Yes (Other)
  Sender: FDA-Public Use
  Company Number: ES-B.I. PHARMACEUTICALS,INC./RIDGEFIELD-2009-ES-00042ES

PATIENT
  Sex: Female
  Weight: 65 kg

DRUGS (2)
  1. MICARDIS HCT [Suspect]
     Indication: HYPERTENSION
     Route: 048
     Dates: start: 20080901, end: 20090101
  2. SERC [Concomitant]
     Indication: VERTIGO
     Dosage: OCCASIONALLY
     Route: 048
     Dates: start: 20081201

REACTIONS (5)
  - BACK PAIN [None]
  - CHEST PAIN [None]
  - DIZZINESS [None]
  - DYSPNOEA [None]
  - RENAL FAILURE [None]
